FAERS Safety Report 7625818-3 (Version None)
Quarter: 2011Q3

REPORT INFORMATION
  Report Type: 
  Country: None (occurrence: None)
  Receive Date: 20110721
  Receipt Date: 20110712
  Transmission Date: 20111222
  Serious: Yes (Hospitalization, Other)
  Sender: FDA-Public Use
  Company Number: FR-ELI_LILLY_AND_COMPANY-FR201107003035

PATIENT
  Sex: Male

DRUGS (7)
  1. POTASSIUM CHLORIDE [Concomitant]
     Dosage: 1000 DF, UNK
  2. CARBOPLATIN [Concomitant]
     Indication: LUNG NEOPLASM MALIGNANT
     Dosage: UNK, UNKNOWN
     Route: 042
     Dates: start: 20110107
  3. PANTOPRAZOLE [Concomitant]
     Dosage: 40 DF, UNK
  4. EXFORGE [Concomitant]
     Dosage: 16/10, UNKNOWN
  5. ALIMTA [Suspect]
     Indication: LUNG NEOPLASM MALIGNANT
     Dosage: 500 MG, UNKNOWN
     Route: 042
     Dates: start: 20110107, end: 20110401
  6. HYPERIUM [Concomitant]
  7. ASPIRIN [Concomitant]
     Dosage: 74 DF, UNK

REACTIONS (6)
  - LOSS OF CONSCIOUSNESS [None]
  - MALAISE [None]
  - NAUSEA [None]
  - ANAEMIA [None]
  - ASTHENIA [None]
  - MOUTH ULCERATION [None]
